FAERS Safety Report 12968425 (Version 2)
Quarter: 2016Q4

REPORT INFORMATION
  Report Type: Spontaneous
  Country: US (occurrence: US)
  Receive Date: 20161123
  Receipt Date: 20161223
  Transmission Date: 20170207
  Serious: No
  Sender: FDA-Public Use
  Company Number: US-GLAXOSMITHKLINE-US2016172978

PATIENT
  Sex: Male

DRUGS (1)
  1. FLOVENT [Suspect]
     Active Substance: FLUTICASONE PROPIONATE
     Indication: PRODUCT USED FOR UNKNOWN INDICATION
     Dosage: UNK UNK, BID

REACTIONS (6)
  - Device leakage [Unknown]
  - Accidental exposure to product [Unknown]
  - Device use error [Unknown]
  - Incorrect product storage [Unknown]
  - Product cleaning inadequate [Unknown]
  - Product quality issue [Unknown]
